FAERS Safety Report 16277396 (Version 1)
Quarter: 2019Q2

REPORT INFORMATION
  Report Type: Spontaneous
  Country: CN (occurrence: CN)
  Receive Date: 20190506
  Receipt Date: 20190506
  Transmission Date: 20190711
  Serious: Yes (Other)
  Sender: FDA-Public Use
  Company Number: CN-PFIZER INC-2019177118

PATIENT
  Age: 52 Year
  Sex: Male
  Weight: 68 kg

DRUGS (3)
  1. MOUSE NERVE GROWTH FACTOR FOR INJECTION [Concomitant]
     Indication: OPTIC NERVE INJURY
     Dosage: 30 UG, 1X/DAY
     Route: 041
     Dates: start: 20190319, end: 20190401
  2. ALPROSTADIL. [Concomitant]
     Active Substance: ALPROSTADIL
     Indication: DRUG THERAPY
     Dosage: 10 UG, 1X/DAY
     Route: 041
     Dates: start: 20190319, end: 20190403
  3. SOLU-MEDROL [Suspect]
     Active Substance: METHYLPREDNISOLONE SODIUM SUCCINATE
     Indication: DRUG THERAPY
     Dosage: 500 MG, 1X/DAY
     Route: 041
     Dates: start: 20190319, end: 20190322

REACTIONS (3)
  - Ascites [Recovering/Resolving]
  - Intra-abdominal fluid collection [Recovering/Resolving]
  - Pleural effusion [Recovering/Resolving]

NARRATIVE: CASE EVENT DATE: 20190322
